FAERS Safety Report 8166229 (Version 4)
Quarter: 2013Q1

REPORT INFORMATION
  Report Type: Spontaneous
  Country: US (occurrence: US)
  Receive Date: 20111003
  Receipt Date: 20130130
  Transmission Date: 20140127
  Serious: Yes (Hospitalization, Other)
  Sender: FDA-Public Use
  Company Number: US-ASTRAZENECA-2011SE57579

PATIENT
  Age: 53 Year
  Sex: Male
  Weight: 99.3 kg

DRUGS (5)
  1. NEXIUM [Suspect]
     Indication: GASTROOESOPHAGEAL REFLUX DISEASE
     Route: 048
     Dates: start: 2004
  2. SEROQUEL [Suspect]
     Indication: BIPOLAR I DISORDER
     Route: 048
     Dates: start: 2010
  3. CRESTOR [Suspect]
     Indication: HYPERCHOLESTEROLAEMIA
     Route: 048
     Dates: start: 2010
  4. LISINOPRIL [Suspect]
     Indication: BLOOD PRESSURE ABNORMAL
     Dosage: 20/25 MG
     Route: 048
  5. VICODIN [Concomitant]
     Indication: MUSCULOSKELETAL PAIN

REACTIONS (6)
  - Psychotic disorder [Unknown]
  - Rotator cuff syndrome [Recovering/Resolving]
  - Depression [Unknown]
  - Bipolar I disorder [Unknown]
  - Pain [Unknown]
  - Blood cholesterol increased [Unknown]
